FAERS Safety Report 7040998-9 (Version None)
Quarter: 2010Q4

REPORT INFORMATION
  Report Type: 
  Country: None (occurrence: None)
  Receive Date: 20101013
  Receipt Date: 20100929
  Transmission Date: 20110411
  Serious: Yes (Hospitalization, Other)
  Sender: FDA-Public Use
  Company Number: PHFR2010GB03133

PATIENT
  Sex: Female

DRUGS (8)
  1. CLOZARIL [Suspect]
     Indication: SCHIZOPHRENIA
     Dosage: UNK
     Route: 048
     Dates: start: 20100811
  2. CLOZARIL [Suspect]
     Dosage: UNK
     Route: 048
     Dates: start: 20100909
  3. RANITIDINE [Concomitant]
     Dosage: 150 MG, BID
  4. CYCLIZINE [Concomitant]
     Dosage: UNK
  5. ORPHENADRINE CITRATE [Concomitant]
     Indication: EXTRAPYRAMIDAL DISORDER
     Dosage: 100 MG, UNK
     Dates: start: 20100201
  6. PARACETAMOL [Concomitant]
     Dosage: UNK
  7. FLUPENTIXOL [Concomitant]
     Dosage: 200 MG, UNK
     Route: 030
     Dates: start: 20100201
  8. HALOPERIDOL [Concomitant]
     Dosage: UNK
     Route: 048
     Dates: start: 20100201, end: 20100801

REACTIONS (6)
  - BENIGN INTRACRANIAL HYPERTENSION [None]
  - CEREBROSPINAL FLUID DRAINAGE [None]
  - HEADACHE [None]
  - HYPERPROLACTINAEMIA [None]
  - PAPILLOEDEMA [None]
  - VOMITING [None]
